FAERS Safety Report 21234794 (Version 1)
Quarter: 2022Q3

REPORT INFORMATION
  Report Type: Spontaneous
  Country: US (occurrence: US)
  Receive Date: 20220820
  Receipt Date: 20220820
  Transmission Date: 20221027
  Serious: No
  Sender: FDA-Public Use
  Company Number: US-TEVA-2022-US-2062364

PATIENT
  Age: 69 Year
  Sex: Male

DRUGS (3)
  1. AUSTEDO [Suspect]
     Active Substance: DEUTETRABENAZINE
     Indication: Tardive dyskinesia
     Route: 065
     Dates: start: 20220201
  2. AUSTEDO [Suspect]
     Active Substance: DEUTETRABENAZINE
     Dosage: 60 MILLIGRAM DAILY;
     Route: 065
     Dates: start: 2022
  3. AUSTEDO [Suspect]
     Active Substance: DEUTETRABENAZINE
     Dosage: 48 MILLIGRAM DAILY;
     Route: 065
     Dates: start: 2022

REACTIONS (4)
  - Cheilitis [Unknown]
  - Stomatitis [Unknown]
  - Hypersomnia [Not Recovered/Not Resolved]
  - Therapeutic product effect incomplete [Unknown]

NARRATIVE: CASE EVENT DATE: 20220101
